FAERS Safety Report 10109192 (Version 3)
Quarter: 2014Q2

REPORT INFORMATION
  Report Type: Report from Study
  Country: JP (occurrence: JP)
  Receive Date: 20140425
  Receipt Date: 20140513
  Transmission Date: 20141212
  Serious: Yes (Hospitalization)
  Sender: FDA-Public Use
  Company Number: JP-ROCHE-1385575

PATIENT
  Age: 50 Year
  Sex: Female
  Weight: 67.1 kg

DRUGS (18)
  1. TRASTUZUMAB EMTANSINE [Suspect]
     Indication: BREAST CANCER METASTATIC
     Dosage: 242.3 MG
     Route: 042
     Dates: start: 20140409
  2. DIAZEPAM [Concomitant]
     Indication: INSOMNIA
     Dosage: DRUG REPORTED AS CERCINE?BEGINNING OF DOSAGE DAY: TRIAL PREINITIATION BEFORE IT SLEEPS
     Route: 048
  3. MAGMITT [Concomitant]
     Indication: CONSTIPATION
     Route: 048
  4. LOXONIN [Concomitant]
     Indication: BACK PAIN
     Route: 048
  5. PURSENNID [Concomitant]
     Indication: CONSTIPATION
     Route: 048
  6. URSO [Concomitant]
     Indication: BREAST CANCER METASTATIC
     Dosage: BEGINNING OF DOSAGE DAY: TRIAL PREINITIATION AFTER EVERY MEAL
     Route: 048
  7. TAKEPRON [Concomitant]
     Indication: PROPHYLAXIS
     Dosage: BEGINNING OF DOSAGE DAY: TRIAL PREINITIATION AFTER THE BREAKFAST
     Route: 048
  8. POLAPREZINC [Concomitant]
     Indication: PROPHYLAXIS
     Dosage: BEGINNING OF DOSAGE DAY: TRIAL PREINITIATION AFTER MORNING/ SUPPER
     Route: 048
  9. OXYCONTIN [Concomitant]
     Indication: BREAST CANCER METASTATIC
     Dosage: BEGINNING OF DOSAGE DAY: TRIAL PREINITIATION 20 EIGHT O^CLOCL/O^CLOCK
     Route: 048
  10. HALCION [Concomitant]
     Indication: INSOMNIA
     Dosage: BEGINNING OF DOSAGE DAY: TRIAL PREINITIATION SINGLE USE
     Route: 048
  11. METHYCOBAL [Concomitant]
     Indication: NEUROPATHY PERIPHERAL
     Dosage: BEGINNING OF DOSAGE DAY: TRIAL PREINITIATION AFTER EVERY MEAL
     Route: 048
  12. MUCOSTA [Concomitant]
     Indication: PROPHYLAXIS
     Dosage: BEGINNING OF DOSAGE DAY: TRIAL PREINITIATION AFTER EVERY MEAL
     Route: 048
  13. OXINORM (JAPAN) [Concomitant]
     Indication: BREAST CANCER METASTATIC
     Dosage: BEGINNING OF DOSAGE DAY: TRIAL PREINITIATION AT THE PAIN
     Route: 048
  14. SELTOUCH [Concomitant]
     Indication: BACK PAIN
     Dosage: BEGINNING OF DOSAGE DAY: TRIAL PREINITIATION
     Route: 061
  15. LAXOBERON [Concomitant]
     Indication: CONSTIPATION
     Dosage: BEGINNING OF DOSAGE DAY: TRIAL PREINITIATION AT THE OBSTIPATION
     Route: 048
  16. HICEE [Concomitant]
     Indication: NEUROPATHY PERIPHERAL
     Dosage: BEGINNING OF DOSAGE DAY: TRIAL PREINITIATION AFTER EVERY MEAL
     Route: 048
  17. CHLORHEXIDINE GLUCONATE [Concomitant]
     Indication: BREAST CANCER METASTATIC
     Dosage: DRUG REPORTED AS STERICLON W, BEGINNING OF DOSAGE DAY: TRIAL PREINITIATION PROPER QUANTITY
     Route: 061
  18. GEBEN CREAM [Concomitant]
     Indication: BREAST CANCER METASTATIC
     Dosage: BEGINNING OF DOSAGE DAY: TRIAL PREINITIATION PROPER QUANTITY
     Route: 061

REACTIONS (1)
  - Hepatic function abnormal [Recovered/Resolved]
